FAERS Safety Report 5033619-8 (Version None)
Quarter: 2006Q2

REPORT INFORMATION
  Report Type: 
  Country: None (occurrence: None)
  Receive Date: 20060620
  Receipt Date: 20060609
  Transmission Date: 20061013
  Serious: Yes (Other)
  Sender: FDA-Public Use
  Company Number: 2006060437

PATIENT
  Sex: 0

DRUGS (4)
  1. HEPARIN SODIUM [Suspect]
     Indication: PERCUTANEOUS CORONARY INTERVENTION
     Dosage: SEE IMAGE
     Route: 065
  2. ASPIRIN [Concomitant]
  3. TICLOPIDINE (TICLOPIDINE) [Concomitant]
  4. REOPRO [Concomitant]

REACTIONS (1)
  - ACUTE MYOCARDIAL INFARCTION [None]
